FAERS Safety Report 4595317-4 (Version None)
Quarter: 2005Q1

REPORT INFORMATION
  Report Type: 
  Country: None (occurrence: None)
  Receive Date: 20050225
  Receipt Date: 20050225
  Transmission Date: 20050727
  Serious: Yes (Hospitalization)
  Sender: FDA-Public Use
  Company Number: None

PATIENT
  Age: 43 Year
  Sex: Male
  Weight: 97.3 kg

DRUGS (3)
  1. CLONAZEPAM [Suspect]
     Indication: ANXIETY
     Dosage: 1MG PO TID PRN ANXIETY
     Route: 048
     Dates: start: 20050125
  2. QUETIAPINE  25MG [Suspect]
     Indication: AGITATION
     Dosage: 50MG PO TID
     Route: 048
     Dates: start: 20050125
  3. QUETIAPINE  25MG [Suspect]
     Indication: BIPOLAR DISORDER
     Dosage: 50MG PO TID
     Route: 048
     Dates: start: 20050125

REACTIONS (1)
  - INTENTIONAL MISUSE [None]
